FAERS Safety Report 5594661-1 (Version None)
Quarter: 2008Q1

REPORT INFORMATION
  Report Type: 
  Country: None (occurrence: None)
  Receive Date: 20080117
  Receipt Date: 20080107
  Transmission Date: 20080703
  Serious: Yes (Death, Hospitalization)
  Sender: FDA-Public Use
  Company Number: JP-AMGEN-US256982

PATIENT
  Sex: Male
  Weight: 80 kg

DRUGS (2)
  1. ENBREL [Suspect]
     Indication: RHEUMATOID ARTHRITIS
     Route: 058
     Dates: start: 20050801
  2. ENBREL [Suspect]
     Route: 058
     Dates: start: 20070723

REACTIONS (1)
  - INTERSTITIAL LUNG DISEASE [None]
